FAERS Safety Report 8847304 (Version 1)
Quarter: 2012Q4

REPORT INFORMATION
  Report Type: 
  Country: US (occurrence: US)
  Receive Date: 20121018
  Receipt Date: 20121018
  Transmission Date: 20130627
  Serious: No
  Sender: FDA-Public Use
  Company Number: US-PFIZER INC-2012258586

PATIENT
  Sex: Female
  Weight: 47.62 kg

DRUGS (3)
  1. CHANTIX [Suspect]
     Dosage: 0.5 mg, UNK
     Dates: start: 20121009
  2. CHANTIX [Suspect]
     Dosage: 0.5mg, 2x/day
     Dates: start: 2012
  3. CHANTIX [Suspect]
     Dosage: 0.5 mg, 1x/day
     Dates: start: 20121013

REACTIONS (1)
  - Nausea [Unknown]
